FAERS Safety Report 17646850 (Version 4)
Quarter: 2022Q1

REPORT INFORMATION
  Report Type: Spontaneous
  Country: JP (occurrence: JP)
  Receive Date: 20200408
  Receipt Date: 20220128
  Transmission Date: 20220424
  Serious: Yes (Hospitalization, Other)
  Sender: FDA-Public Use
  Company Number: JP-DSJP-DSJ-2020-110647

PATIENT
  Age: 7 Decade
  Sex: Male
  Weight: 65 kg

DRUGS (7)
  1. EDOXABAN TOSYLATE [Suspect]
     Active Substance: EDOXABAN TOSYLATE
     Indication: Deep vein thrombosis
     Dosage: UNK
     Route: 065
  2. RIFADIN [Suspect]
     Active Substance: RIFAMPIN
     Indication: Arthritis
     Dosage: UNK
     Route: 065
  3. RIFADIN [Suspect]
     Active Substance: RIFAMPIN
     Indication: Muscle abscess
  4. MEROPENEM [Concomitant]
     Active Substance: MEROPENEM
     Indication: Arthritis bacterial
     Dosage: UNK
     Route: 065
  5. MEROPENEM [Concomitant]
     Active Substance: MEROPENEM
     Indication: Muscle abscess
  6. CEFAZOLIN SODIUM [Suspect]
     Active Substance: CEFAZOLIN SODIUM
     Indication: Arthritis bacterial
     Dosage: UNK
     Route: 065
  7. CEFAZOLIN SODIUM [Suspect]
     Active Substance: CEFAZOLIN SODIUM
     Indication: Muscle abscess

REACTIONS (4)
  - Renal failure [Unknown]
  - Coagulopathy [Recovered/Resolved]
  - Vitamin K deficiency [Unknown]
  - Diarrhoea [Unknown]
